FAERS Safety Report 6849987-8 (Version None)
Quarter: 2010Q3

REPORT INFORMATION
  Report Type: 
  Country: None (occurrence: None)
  Receive Date: 20100716
  Receipt Date: 20071127
  Transmission Date: 20110219
  Serious: Yes (Other)
  Sender: FDA-Public Use
  Company Number: US-PFIZER INC-2007085458

PATIENT
  Age: 30 Year
  Sex: Male
  Weight: 75 kg

DRUGS (1)
  1. CHANTIX [Suspect]
     Indication: SMOKING CESSATION THERAPY
     Dosage: EVERY DAY
     Route: 048
     Dates: start: 20071001, end: 20071001

REACTIONS (2)
  - NIGHTMARE [None]
  - SLEEP DISORDER [None]
